FAERS Safety Report 25726756 (Version 1)
Quarter: 2025Q3

REPORT INFORMATION
  Report Type: Spontaneous
  Country: US (occurrence: None)
  Receive Date: 20250825
  Receipt Date: 20250825
  Transmission Date: 20251021
  Serious: Yes (Hospitalization)
  Sender: FDA-CTU
  Company Number: None

PATIENT
  Age: 75 Year
  Sex: Female

DRUGS (2)
  1. ALPRAZOLAM [Suspect]
     Active Substance: ALPRAZOLAM
  2. FUROSEMIDE [Suspect]
     Active Substance: FUROSEMIDE

REACTIONS (5)
  - Speech disorder [None]
  - Gait disturbance [None]
  - Fall [None]
  - Injury [None]
  - Radius fracture [None]

NARRATIVE: CASE EVENT DATE: 20220614
